FAERS Safety Report 12617909 (Version 1)
Quarter: 2016Q3

REPORT INFORMATION
  Report Type: Spontaneous
  Country: US (occurrence: US)
  Receive Date: 20160803
  Receipt Date: 20160803
  Transmission Date: 20161109
  Serious: No
  Sender: FDA-Public Use
  Company Number: US-BAYER-2016-148596

PATIENT
  Age: 89 Year
  Sex: Female
  Weight: 55.33 kg

DRUGS (2)
  1. CLARITIN REDITABS [Suspect]
     Active Substance: LORATADINE
     Indication: MULTIPLE ALLERGIES
     Dosage: 1 DF, PRN
     Route: 048
     Dates: start: 2015
  2. CLARITIN REDITABS [Suspect]
     Active Substance: LORATADINE
     Indication: SINUS DISORDER

REACTIONS (2)
  - Blood pressure decreased [None]
  - Product use issue [None]
